FAERS Safety Report 11071311 (Version 1)
Quarter: 2015Q2

REPORT INFORMATION
  Report Type: Spontaneous
  Country: US (occurrence: None)
  Receive Date: 20150427
  Receipt Date: 20150427
  Transmission Date: 20150821
  Serious: Yes (Hospitalization)
  Sender: FDA-Public Use
  Company Number: None

PATIENT
  Age: 61 Year
  Sex: Male
  Weight: 85 kg

DRUGS (5)
  1. HARVONI [Suspect]
     Active Substance: LEDIPASVIR\SOFOSBUVIR
     Indication: HEPATITIS C
     Route: 048
     Dates: start: 20150206
  2. ELIQUIS [Concomitant]
     Active Substance: APIXABAN
  3. FENOFIBRATE (TRICOR) [Concomitant]
  4. LISINOPRIL (PRINIVIL, ZESTRIL) [Concomitant]
  5. CO-ENZYME Q-10 [Concomitant]

REACTIONS (2)
  - Atrial fibrillation [None]
  - Fatigue [None]

NARRATIVE: CASE EVENT DATE: 20150407
